FAERS Safety Report 5550377-9 (Version None)
Quarter: 2007Q4

REPORT INFORMATION
  Report Type: 
  Country: None (occurrence: None)
  Receive Date: 20071210
  Receipt Date: 20071123
  Transmission Date: 20080405
  Serious: Yes (Death)
  Sender: FDA-Public Use
  Company Number: 2007BI014404

PATIENT
  Age: 67 Year
  Sex: Male

DRUGS (5)
  1. ZEVALIN [Suspect]
     Indication: MANTLE CELL LYMPHOMA RECURRENT
     Dosage: 0.4 MCI/KG; 1X; IV
     Route: 042
     Dates: start: 20050114, end: 20050114
  2. RITUXIMAB [Concomitant]
  3. FLUDARA [Concomitant]
  4. CYCLOPHOSPHAMIDE [Concomitant]
  5. MITOXANTRONE [Concomitant]

REACTIONS (5)
  - CARDIAC FAILURE [None]
  - GASTRIC ULCER HAEMORRHAGE [None]
  - HAEMATOCRIT DECREASED [None]
  - HAEMOGLOBIN DECREASED [None]
  - RED BLOOD CELL COUNT DECREASED [None]
